FAERS Safety Report 19677535 (Version 2)
Quarter: 2021Q3

REPORT INFORMATION
  Report Type: Spontaneous
  Country: US (occurrence: US)
  Receive Date: 20210809
  Receipt Date: 20210923
  Transmission Date: 20211014
  Serious: Yes (Hospitalization, Other)
  Sender: FDA-Public Use
  Company Number: US-ALLERGAN-2127760US

PATIENT
  Sex: Female
  Weight: 52.1 kg

DRUGS (2)
  1. AMLODIPINE [Concomitant]
     Active Substance: AMLODIPINE BESYLATE
     Indication: HYPERTENSION
     Dosage: 10 MG, QD
  2. MESALAZINE 400MG CAP [Suspect]
     Active Substance: MESALAMINE
     Indication: COLITIS ULCERATIVE
     Dosage: 4 DF, TID
     Dates: start: 202003, end: 202006

REACTIONS (7)
  - Haemorrhage [Unknown]
  - Sepsis [Unknown]
  - Inflammation [Unknown]
  - Haematochezia [Unknown]
  - Colitis ulcerative [Unknown]
  - Abnormal faeces [Unknown]
  - Mucous stools [Unknown]

NARRATIVE: CASE EVENT DATE: 202003
